FAERS Safety Report 21124835 (Version 1)
Quarter: 2022Q3

REPORT INFORMATION
  Report Type: Spontaneous
  Country: US (occurrence: None)
  Receive Date: 20220722
  Receipt Date: 20220722
  Transmission Date: 20221027
  Serious: Yes (Hospitalization)
  Sender: FDA-Public Use
  Company Number: None

PATIENT
  Age: 79 Year
  Sex: Female
  Weight: 89.49 kg

DRUGS (19)
  1. CAPECITABINE [Suspect]
     Active Substance: CAPECITABINE
     Indication: Breast cancer female
     Dosage: FREQUENCY : TWICE A DAY;?
     Route: 048
     Dates: start: 202112
  2. ACETAMINOPHEN [Concomitant]
     Active Substance: ACETAMINOPHEN
  3. ATIVAN [Concomitant]
     Active Substance: LORAZEPAM
  4. CLARITIN [Concomitant]
     Active Substance: LORATADINE
  5. EFFEXOR XR [Concomitant]
     Active Substance: VENLAFAXINE HYDROCHLORIDE
  6. GABAPENTIN [Concomitant]
     Active Substance: GABAPENTIN
  7. LOSARTAN [Concomitant]
     Active Substance: LOSARTAN
  8. POTASSIUM [Concomitant]
     Active Substance: POTASSIUM
  9. LOTRISONE [Concomitant]
     Active Substance: BETAMETHASONE DIPROPIONATE\CLOTRIMAZOLE
  10. METFORMIN HYDROCHLORIDE [Concomitant]
     Active Substance: METFORMIN HYDROCHLORIDE
  11. NEPHRO-VITE RX [Concomitant]
  12. PROCHLORPERAZINE [Concomitant]
  13. ROSUVASTATIN [Concomitant]
     Active Substance: ROSUVASTATIN
  14. CALCIUM [Concomitant]
     Active Substance: CALCIUM
  15. SYNTHROID [Concomitant]
     Active Substance: LEVOTHYROXINE SODIUM
  16. TRADJENTA [Concomitant]
     Active Substance: LINAGLIPTIN
  17. VITAMIN B [Concomitant]
     Active Substance: VITAMIN B
  18. VITAMIN D3 [Concomitant]
     Active Substance: CHOLECALCIFEROL
  19. XARELTO [Concomitant]
     Active Substance: RIVAROXABAN

REACTIONS (1)
  - Fall [None]
